FAERS Safety Report 7145083-3 (Version None)
Quarter: 2010Q4

REPORT INFORMATION
  Report Type: 
  Country: None (occurrence: None)
  Receive Date: 20101208
  Receipt Date: 20101129
  Transmission Date: 20110411
  Serious: Yes (Other)
  Sender: FDA-Public Use
  Company Number: PHHY2010BR39896

PATIENT
  Sex: Female
  Weight: 84 kg

DRUGS (7)
  1. TRILEPTAL [Suspect]
     Indication: CONVULSION
     Dosage: 300 MG, Q8H
     Dates: start: 20090101
  2. TRILEPTAL [Suspect]
     Dosage: 300 MG, Q8H
     Dates: start: 20100601
  3. TRAMADOL HCL [Concomitant]
     Indication: PAIN
     Dosage: 50 MG, Q8H
     Dates: start: 20071101
  4. AMITRIPTYLINE [Concomitant]
     Indication: PAIN
     Dosage: 25 MG, 1 TABLET AT NIGHT
     Route: 048
     Dates: start: 20030101
  5. AMITRIPTYLINE [Concomitant]
     Indication: DEPRESSION
  6. ENALAPRIL MALEATE [Concomitant]
     Indication: HYPERTENSION
     Dosage: 10 MG, BID
     Route: 048
     Dates: start: 20030101
  7. OLEPTAL [Concomitant]
     Indication: HEAD INJURY
     Dosage: 300 MG, Q14H
     Dates: start: 20100501

REACTIONS (19)
  - ASTHENIA [None]
  - BLOOD PRESSURE INCREASED [None]
  - CONVULSION [None]
  - DECREASED ACTIVITY [None]
  - DIZZINESS [None]
  - DRUG INEFFECTIVE [None]
  - DRY MOUTH [None]
  - FATIGUE [None]
  - FEELING ABNORMAL [None]
  - HEADACHE [None]
  - HEART RATE INCREASED [None]
  - HYPERHIDROSIS [None]
  - INSOMNIA [None]
  - MEMORY IMPAIRMENT [None]
  - THIRST [None]
  - TONGUE DISORDER [None]
  - TONGUE SPASM [None]
  - VIITH NERVE PARALYSIS [None]
  - VISION BLURRED [None]
